FAERS Safety Report 23592492 (Version 1)
Quarter: 2024Q1

REPORT INFORMATION
  Report Type: Spontaneous
  Country: BG (occurrence: BG)
  Receive Date: 20240304
  Receipt Date: 20240304
  Transmission Date: 20240410
  Serious: Yes (Other)
  Sender: FDA-Public Use
  Company Number: None

PATIENT
  Age: 3 Year
  Sex: Male
  Weight: 17 kg

DRUGS (2)
  1. TAMIFLU [Suspect]
     Active Substance: OSELTAMIVIR PHOSPHATE
     Indication: Influenza A virus test positive
     Dosage: 7.5 ML 2 TIMES DAILY
     Route: 048
     Dates: start: 20240207, end: 20240208
  2. IBUPROFEN [Concomitant]
     Active Substance: IBUPROFEN

REACTIONS (10)
  - Speech disorder [Recovered/Resolved]
  - Swelling face [Recovered/Resolved]
  - Gait disturbance [Recovered/Resolved]
  - Unresponsive to stimuli [Recovered/Resolved]
  - Gingival bleeding [Recovered/Resolved]
  - Somnolence [Recovered/Resolved]
  - Eyelid ptosis [Recovered/Resolved]
  - Somnolence [Not Recovered/Not Resolved]
  - Epistaxis [Recovered/Resolved]
  - Dehydration [Recovered/Resolved]

NARRATIVE: CASE EVENT DATE: 20240208
